FAERS Safety Report 8580973-6 (Version None)
Quarter: 2012Q3

REPORT INFORMATION
  Report Type: 
  Country: None (occurrence: None)
  Receive Date: 20120809
  Receipt Date: 20120807
  Transmission Date: 20120928
  Serious: No
  Sender: FDA-Public Use
  Company Number: US-PFIZER INC-2012193355

PATIENT
  Age: 28 Year
  Sex: Female
  Weight: 88.435 kg

DRUGS (2)
  1. XANAX [Concomitant]
     Indication: SLEEP DISORDER
     Dosage: 0.25 MG, 3X/DAY
  2. PRISTIQ [Suspect]
     Indication: DEPRESSION
     Dosage: 50 MG, DAILY
     Dates: start: 20120711, end: 20120803

REACTIONS (3)
  - HOSTILITY [None]
  - IRRITABILITY [None]
  - AGGRESSION [None]
